FAERS Safety Report 5333710-2 (Version None)
Quarter: 2007Q2

REPORT INFORMATION
  Report Type: 
  Country: None (occurrence: None)
  Receive Date: 20070524
  Receipt Date: 20070514
  Transmission Date: 20071010
  Serious: Yes (Hospitalization)
  Sender: FDA-Public Use
  Company Number: B0471458A

PATIENT
  Age: 6 Year
  Sex: Female
  Weight: 20 kg

DRUGS (3)
  1. ZOFRAN [Suspect]
     Dosage: 4MG PER DAY
     Route: 042
     Dates: start: 20070320, end: 20070323
  2. NUBAIN [Suspect]
     Dosage: 16MG PER DAY
     Route: 042
     Dates: start: 20070320, end: 20070321
  3. PERFALGAN [Concomitant]
     Route: 042

REACTIONS (4)
  - COGNITIVE DISORDER [None]
  - DISORIENTATION [None]
  - PROSTRATION [None]
  - STUPOR [None]
